FAERS Safety Report 20700533 (Version 2)
Quarter: 2022Q2

REPORT INFORMATION
  Report Type: Spontaneous
  Country: CA (occurrence: None)
  Receive Date: 20220412
  Receipt Date: 20220420
  Transmission Date: 20220721
  Serious: Yes (Other)
  Sender: FDA-Public Use
  Company Number: CA-ROCHE-3071023

PATIENT
  Age: 26 Year
  Sex: Female

DRUGS (25)
  1. ACTEMRA [Suspect]
     Active Substance: TOCILIZUMAB
     Indication: Juvenile idiopathic arthritis
     Route: 065
  2. ACTEMRA [Suspect]
     Active Substance: TOCILIZUMAB
     Indication: Uveitis
  3. ACTEMRA [Suspect]
     Active Substance: TOCILIZUMAB
     Indication: Juvenile idiopathic arthritis
     Route: 042
  4. ACTEMRA [Suspect]
     Active Substance: TOCILIZUMAB
     Indication: Uveitis
  5. RITUXIMAB [Suspect]
     Active Substance: RITUXIMAB
     Indication: Juvenile idiopathic arthritis
     Route: 041
  6. MYCOPHENOLATE MOFETIL [Suspect]
     Active Substance: MYCOPHENOLATE MOFETIL
     Indication: Product used for unknown indication
     Route: 065
  7. PREDNISONE [Suspect]
     Active Substance: PREDNISONE
     Indication: Product used for unknown indication
     Route: 065
  8. ACCUTANE [Concomitant]
     Active Substance: ISOTRETINOIN
  9. ACETAZOLAMIDE [Concomitant]
     Active Substance: ACETAZOLAMIDE
  10. ARAVA [Concomitant]
     Active Substance: LEFLUNOMIDE
  11. AZOPT [Concomitant]
     Active Substance: BRINZOLAMIDE
     Route: 065
  12. BENADRYL [Concomitant]
     Active Substance: DIPHENHYDRAMINE HYDROCHLORIDE
     Indication: Premedication
     Route: 048
  13. CANNABIDIOL [Concomitant]
     Active Substance: CANNABIDIOL
  14. DEXAMFETAMINE HYDROCHLORIDE [Concomitant]
  15. DUREZOL [Concomitant]
     Active Substance: DIFLUPREDNATE
  16. GABAPENTIN [Concomitant]
     Active Substance: GABAPENTIN
  17. LEFLUNOMIDE [Concomitant]
     Active Substance: LEFLUNOMIDE
  18. MELOXICAM [Concomitant]
     Active Substance: MELOXICAM
  19. NORTRIPTYLINE [Concomitant]
     Active Substance: NORTRIPTYLINE
  20. PAROXETINE HYDROCHLORIDE [Concomitant]
     Active Substance: PAROXETINE HYDROCHLORIDE
  21. PILOCARPINE [Concomitant]
     Active Substance: PILOCARPINE
     Route: 065
  22. SOLU-MEDROL [Concomitant]
     Active Substance: METHYLPREDNISOLONE SODIUM SUCCINATE
     Indication: Premedication
     Route: 042
  23. TIMOLOL MALEATE;TRAVOPROST [Concomitant]
  24. TYLENOL [Concomitant]
     Active Substance: ACETAMINOPHEN
     Indication: Premedication
     Route: 048
  25. VENLAFAXINE [Concomitant]
     Active Substance: VENLAFAXINE HYDROCHLORIDE

REACTIONS (9)
  - Acne [Not Recovered/Not Resolved]
  - Aphthous ulcer [Not Recovered/Not Resolved]
  - Cataract [Not Recovered/Not Resolved]
  - Depression [Not Recovered/Not Resolved]
  - Heart rate increased [Not Recovered/Not Resolved]
  - Meningitis [Not Recovered/Not Resolved]
  - Off label use [Unknown]
  - Oral pain [Not Recovered/Not Resolved]
  - Uveitis [Not Recovered/Not Resolved]
